FAERS Safety Report 17268676 (Version 1)
Quarter: 2020Q1

REPORT INFORMATION
  Report Type: Spontaneous
  Country: US (occurrence: US)
  Receive Date: 20200114
  Receipt Date: 20200114
  Transmission Date: 20200409
  Serious: Yes (Death)
  Sender: FDA-Public Use
  Company Number: None

PATIENT
  Age: 83 Year
  Sex: Female

DRUGS (1)
  1. APIXABAN [Suspect]
     Active Substance: APIXABAN

REACTIONS (4)
  - Renal haematoma [None]
  - Haemoglobin decreased [None]
  - Renal haemorrhage [None]
  - International normalised ratio decreased [None]

NARRATIVE: CASE EVENT DATE: 20190425
